FAERS Safety Report 9374732 (Version 6)
Quarter: 2014Q1

REPORT INFORMATION
  Report Type: Spontaneous
  Country: CO (occurrence: CO)
  Receive Date: 20130628
  Receipt Date: 20140102
  Transmission Date: 20141002
  Serious: Yes (Other)
  Sender: FDA-Public Use
  Company Number: CO-AMGEN-COLSP2013004875

PATIENT
  Age: 64 Year
  Sex: Female
  Weight: 65 kg

DRUGS (10)
  1. ENBREL [Suspect]
     Indication: RHEUMATOID ARTHRITIS
     Dosage: 50 MG, WEEKLY
     Route: 058
     Dates: start: 2010
  2. ENBREL [Suspect]
     Dosage: 50 MG, QWK
     Route: 058
     Dates: start: 201303, end: 20131118
  3. ENBREL [Suspect]
     Dosage: 50 MG, UNK
     Route: 065
  4. ACETAMINOPHEN [Concomitant]
     Indication: ARTHRALGIA
     Dosage: 500 MG, QD
     Route: 048
     Dates: start: 201309
  5. DICLOFENAC [Concomitant]
     Indication: ARTHRALGIA
     Dosage: 50 MG, 1X/DAY
     Route: 048
     Dates: start: 201309
  6. METHOTREXATE [Concomitant]
     Indication: RHEUMATOID ARTHRITIS
     Dosage: 4 TABLETS OF 2.5MG, WEEKLY
     Route: 048
     Dates: start: 1998
  7. CALCITRIOL [Concomitant]
     Indication: OSTEOPOROSIS
     Dosage: 0.5 MG, 1X/DAY
     Dates: start: 2006
  8. CALCIUM [Concomitant]
     Indication: OSTEOPOROSIS
     Dosage: 600 MG, 1X/DAY
     Dates: start: 2006
  9. FOLIC ACID [Concomitant]
     Dosage: 1 MG, 1X/DAY
     Dates: start: 2009
  10. THYROXINE [Concomitant]
     Indication: HYPOTHYROIDISM
     Dosage: 150 MG, 1X/DAY
     Route: 048

REACTIONS (16)
  - Spinal column injury [Not Recovered/Not Resolved]
  - Osteoarthritis [Unknown]
  - Product quality issue [Not Recovered/Not Resolved]
  - Drug dose omission [Not Recovered/Not Resolved]
  - Muscular weakness [Not Recovered/Not Resolved]
  - Pain in extremity [Not Recovered/Not Resolved]
  - Tremor [Not Recovered/Not Resolved]
  - Malaise [Not Recovered/Not Resolved]
  - Amnesia [Not Recovered/Not Resolved]
  - Foot deformity [Not Recovered/Not Resolved]
  - Nasal congestion [Not Recovered/Not Resolved]
  - Cough [Not Recovered/Not Resolved]
  - Pyrexia [Not Recovered/Not Resolved]
  - Injection site haemorrhage [Unknown]
  - Urinary tract infection [Recovered/Resolved]
  - Influenza [Recovered/Resolved]
